FAERS Safety Report 10779594 (Version 2)
Quarter: 2015Q1

REPORT INFORMATION
  Report Type: Spontaneous
  Country: US (occurrence: US)
  Receive Date: 20150210
  Receipt Date: 20150210
  Transmission Date: 20150721
  Serious: No
  Sender: FDA-Public Use
  Company Number: US-GLAXOSMITHKLINE-A1075684A

PATIENT

DRUGS (2)
  1. VERAMYST [Suspect]
     Active Substance: FLUTICASONE FUROATE
     Indication: SINUS DISORDER
     Route: 045
     Dates: start: 2010
  2. VERAMYST [Suspect]
     Active Substance: FLUTICASONE FUROATE
     Dates: start: 2010

REACTIONS (3)
  - Expired product administered [Unknown]
  - Product quality issue [Unknown]
  - Headache [Unknown]
